FAERS Safety Report 17171569 (Version 2)
Quarter: 2020Q4

REPORT INFORMATION
  Report Type: Spontaneous
  Country: US (occurrence: US)
  Receive Date: 20191218
  Receipt Date: 20201012
  Transmission Date: 20210113
  Serious: No
  Sender: FDA-Public Use
  Company Number: US-DSJP-DSU-2019-148745

PATIENT
  Age: 21 Year
  Sex: Female

DRUGS (2)
  1. TURALIO [Suspect]
     Active Substance: PEXIDARTINIB HYDROCHLORIDE
     Dosage: 400 MG, QPM
     Route: 048
     Dates: start: 20191112
  2. TURALIO [Suspect]
     Active Substance: PEXIDARTINIB HYDROCHLORIDE
     Indication: SYNOVITIS
     Dosage: 200 MG, QAM
     Route: 048
     Dates: start: 20191112

REACTIONS (7)
  - Nausea [Unknown]
  - Flatulence [Unknown]
  - Abdominal distension [Unknown]
  - Fatigue [Unknown]
  - Influenza [Unknown]
  - Product dose omission issue [Unknown]
  - Vomiting [Unknown]

NARRATIVE: CASE EVENT DATE: 201912
